FAERS Safety Report 23260144 (Version 8)
Quarter: 2024Q3

REPORT INFORMATION
  Report Type: Report from Study
  Country: US (occurrence: US)
  Receive Date: 20231204
  Receipt Date: 20240807
  Transmission Date: 20241016
  Serious: Yes (Hospitalization)
  Sender: ABBVIE
  Company Number: US-ABBVIE-5518783

PATIENT
  Sex: Female

DRUGS (3)
  1. IMBRUVICA [Suspect]
     Active Substance: IBRUTINIB
     Indication: Chronic lymphocytic leukaemia
     Route: 048
     Dates: start: 202007, end: 202204
  2. IMBRUVICA [Suspect]
     Active Substance: IBRUTINIB
     Indication: Chronic lymphocytic leukaemia
     Dosage: DOSE DECREASED
     Route: 048
     Dates: start: 202204
  3. IMBRUVICA [Suspect]
     Active Substance: IBRUTINIB
     Indication: Chronic lymphocytic leukaemia
     Route: 048
     Dates: start: 202007

REACTIONS (15)
  - Blood pressure fluctuation [Unknown]
  - Heart rate increased [Unknown]
  - Joint lock [Recovering/Resolving]
  - Palpitations [Recovering/Resolving]
  - Stomatitis [Recovered/Resolved]
  - Anxiety [Unknown]
  - Erythema [Unknown]
  - Vision blurred [Unknown]
  - Stomatitis [Recovering/Resolving]
  - Vitreous floaters [Unknown]
  - Movement disorder [Unknown]
  - Pain [Unknown]
  - Depressed mood [Unknown]
  - Impaired work ability [Unknown]
  - Arthritis [Unknown]

NARRATIVE: CASE EVENT DATE: 20230101
